FAERS Safety Report 9264737 (Version 3)
Quarter: 2013Q2

REPORT INFORMATION
  Report Type: Report from Study
  Country: MX (occurrence: MX)
  Receive Date: 20130501
  Receipt Date: 20130621
  Transmission Date: 20140414
  Serious: Yes (Death)
  Sender: FDA-Public Use
  Company Number: MX-ROCHE-1220243

PATIENT
  Age: 45 Year
  Sex: Female
  Weight: 76 kg

DRUGS (3)
  1. XELODA [Suspect]
     Indication: BREAST CANCER
     Route: 065
     Dates: start: 201208, end: 201303
  2. HERCEPTIN [Suspect]
     Indication: BREAST CANCER
     Route: 065
  3. OMEPRAZOLE [Concomitant]
     Route: 065
     Dates: start: 201203

REACTIONS (5)
  - Disease progression [Fatal]
  - Pleural effusion [Not Recovered/Not Resolved]
  - Oedema [Unknown]
  - Dyspnoea [Recovering/Resolving]
  - Decreased appetite [Not Recovered/Not Resolved]
